FAERS Safety Report 23731241 (Version 1)
Quarter: 2024Q2

REPORT INFORMATION
  Report Type: Spontaneous
  Country: JP (occurrence: JP)
  Receive Date: 20240411
  Receipt Date: 20240411
  Transmission Date: 20240716
  Serious: Yes (Other)
  Sender: FDA-Public Use
  Company Number: JP-Accord-417920

PATIENT
  Age: 82 Year
  Sex: Female

DRUGS (3)
  1. FLUOROURACIL [Suspect]
     Active Substance: FLUOROURACIL
     Indication: Anal squamous cell carcinoma
     Dosage: DAYS 1-5; EVERY 3 WEEKS
  2. CISPLATIN [Suspect]
     Active Substance: CISPLATIN
     Indication: Anal squamous cell carcinoma
     Dosage: DAY 1
  3. DOCETAXEL [Suspect]
     Active Substance: DOCETAXEL\DOCETAXEL ANHYDROUS
     Indication: Anal squamous cell carcinoma
     Dosage: DAY 1

REACTIONS (1)
  - Febrile neutropenia [Unknown]
